FAERS Safety Report 5943405-X (Version None)
Quarter: 2008Q4

REPORT INFORMATION
  Report Type: 
  Country: None (occurrence: None)
  Receive Date: 20081104
  Receipt Date: 20081020
  Transmission Date: 20090506
  Serious: Yes (Other)
  Sender: FDA-Public Use
  Company Number: 2008S1018972

PATIENT
  Age: 15 Month
  Sex: Female

DRUGS (17)
  1. ERYTHROMYCIN [Suspect]
     Indication: DRUG USE FOR UNKNOWN INDICATION
  2. MICONAZOLE [Suspect]
     Indication: FUNGAL INFECTION
     Dosage: 2.5 ML; TWICE A DAY; ORAL
     Route: 048
     Dates: start: 20080919
  3. TACROLIMUS [Suspect]
     Indication: IMMUNOSUPPRESSION
     Dosage: ; ORAL
     Route: 048
     Dates: start: 20080803
  4. ACYCLOVIR [Concomitant]
  5. AMPHOTERICIN B [Concomitant]
  6. ASPIRIN [Concomitant]
  7. CODEINE SUL TAB [Concomitant]
  8. COLOMYCIN [Concomitant]
  9. CO-TRIMOXAZOLE [Concomitant]
  10. DIPYRIDAMOLE [Concomitant]
  11. GENTAMICIN [Concomitant]
  12. MAGNESIUM GLYCEROPHOSPHATE [Concomitant]
  13. MYCOPHENOLATE MOFETIL [Concomitant]
  14. OMEPRAZOLE [Concomitant]
  15. PREDNISOLONE [Concomitant]
  16. SODIUM BICARBONATE [Concomitant]
  17. URSODIOL [Concomitant]

REACTIONS (3)
  - DRUG INTERACTION [None]
  - DRUG LEVEL INCREASED [None]
  - GASTROINTESTINAL HYPERMOTILITY [None]
